FAERS Safety Report 4644158-8 (Version None)
Quarter: 2005Q2

REPORT INFORMATION
  Report Type: 
  Country: None (occurrence: None)
  Receive Date: 20050425
  Receipt Date: 20050418
  Transmission Date: 20051028
  Serious: Yes (Other)
  Sender: FDA-Public Use
  Company Number: JP-GLAXOSMITHKLINE-B0378532A

PATIENT
  Age: 59 Year
  Sex: Male

DRUGS (2)
  1. PAXIL [Suspect]
     Indication: DEPRESSION
     Dosage: 40MG PER DAY
     Route: 048
  2. BARNETIL [Suspect]
     Indication: MANIA
     Dosage: 150MG PER DAY
     Route: 048

REACTIONS (3)
  - DYSARTHRIA [None]
  - MANIA [None]
  - MOVEMENT DISORDER [None]
